FAERS Safety Report 21498525 (Version 1)
Quarter: 2022Q4

REPORT INFORMATION
  Report Type: Spontaneous
  Country: US (occurrence: None)
  Receive Date: 20221021
  Receipt Date: 20221021
  Transmission Date: 20230112
  Serious: No
  Sender: FDA-Public Use
  Company Number: None

PATIENT
  Age: 86 Year
  Sex: Female

DRUGS (10)
  1. NINLARO [Suspect]
     Active Substance: IXAZOMIB CITRATE
     Indication: Neoplasm malignant
     Dosage: FREQUENCY : ONCE;?
     Route: 048
     Dates: start: 20220929, end: 20221020
  2. ALBUTEROL [Concomitant]
  3. ALPRAZOLAM [Concomitant]
     Active Substance: ALPRAZOLAM
  4. AMLODIPINE BESYLATE [Concomitant]
     Active Substance: AMLODIPINE BESYLATE
  5. BUDESONIDE [Concomitant]
     Active Substance: BUDESONIDE
  6. DEXAMETHASONE [Concomitant]
     Active Substance: DEXAMETHASONE
  7. ELIQUIS [Concomitant]
     Active Substance: APIXABAN
  8. ESCITALOPRAM [Concomitant]
     Active Substance: ESCITALOPRAM OXALATE
  9. OMEPRAZOLE [Concomitant]
     Active Substance: OMEPRAZOLE
  10. PROLIA [Concomitant]
     Active Substance: DENOSUMAB

REACTIONS (1)
  - Constipation [None]

NARRATIVE: CASE EVENT DATE: 20221021
